FAERS Safety Report 5680974-1 (Version None)
Quarter: 2008Q1

REPORT INFORMATION
  Report Type: 
  Country: None (occurrence: None)
  Receive Date: 20080326
  Receipt Date: 20080317
  Transmission Date: 20080703
  Serious: Yes (Hospitalization, Other)
  Sender: FDA-Public Use
  Company Number: US-PFIZER INC-2008024505

PATIENT
  Sex: Male
  Weight: 70 kg

DRUGS (4)
  1. LIPITOR [Suspect]
     Indication: FAMILIAL RISK FACTOR
     Dosage: DAILY DOSE:10MG
     Dates: start: 20060101, end: 20080301
  2. LIPITOR [Suspect]
     Indication: CARDIOVASCULAR EVENT PROPHYLAXIS
  3. AVAPRO [Suspect]
  4. ASPIRIN [Concomitant]

REACTIONS (3)
  - CIRCUMSTANCE OR INFORMATION CAPABLE OF LEADING TO MEDICATION ERROR [None]
  - LACTOSE INTOLERANCE [None]
  - MYOCARDIAL INFARCTION [None]
